FAERS Safety Report 11052399 (Version 1)
Quarter: 2015Q2

REPORT INFORMATION
  Report Type: Spontaneous
  Country: US (occurrence: US)
  Receive Date: 20150421
  Receipt Date: 20150421
  Transmission Date: 20150821
  Serious: Yes (Other)
  Sender: FDA-Public Use
  Company Number: US-TEVA-556596USA

PATIENT
  Age: 34 Year
  Sex: Female
  Weight: 108.96 kg

DRUGS (1)
  1. PARAGARD T 380A [Suspect]
     Active Substance: COPPER
     Indication: CONTRACEPTION
     Route: 015
     Dates: start: 20131107, end: 20150416

REACTIONS (10)
  - Abdominal pain upper [Not Recovered/Not Resolved]
  - Adverse event [Recovered/Resolved]
  - Cervicitis [Not Recovered/Not Resolved]
  - Menstruation irregular [Not Recovered/Not Resolved]
  - Menorrhagia [Unknown]
  - Back pain [Recovered/Resolved]
  - Abdominal pain lower [Not Recovered/Not Resolved]
  - Device dislocation [Recovered/Resolved]
  - Malaise [Recovered/Resolved]
  - Uterine infection [Not Recovered/Not Resolved]

NARRATIVE: CASE EVENT DATE: 20131107
